FAERS Safety Report 6145353-1 (Version None)
Quarter: 2009Q2

REPORT INFORMATION
  Report Type: 
  Country: None (occurrence: None)
  Receive Date: 20090402
  Receipt Date: 20090319
  Transmission Date: 20091009
  Serious: Yes (Death, Hospitalization)
  Sender: FDA-Public Use
  Company Number: 2009AL000498

PATIENT
  Age: 75 Year
  Sex: Female

DRUGS (6)
  1. DIGOXIN [Suspect]
     Indication: CARDIAC DISORDER
     Dosage: 0.125MG, DAILY, PO
     Route: 048
  2. HYDRALAZINE HCL [Concomitant]
  3. POTASSIUM CHLORIDE [Concomitant]
  4. LEXAPRO [Concomitant]
  5. METOPROLOL [Concomitant]
  6. FLOMAX [Concomitant]

REACTIONS (8)
  - ASTHENIA [None]
  - CEREBRAL HAEMORRHAGE [None]
  - CEREBRAL INFARCTION [None]
  - DECREASED ACTIVITY [None]
  - FATIGUE [None]
  - LETHARGY [None]
  - RESPIRATORY DEPRESSION [None]
  - THERAPEUTIC AGENT TOXICITY [None]
